FAERS Safety Report 5225008-8 (Version None)
Quarter: 2007Q1

REPORT INFORMATION
  Report Type: 
  Country: None (occurrence: None)
  Receive Date: 20070126
  Receipt Date: 20070123
  Transmission Date: 20070707
  Serious: Yes (Hospitalization, Other)
  Sender: FDA-Public Use
  Company Number: FRWYE285623JAN07

PATIENT
  Age: 96 Year
  Sex: Female

DRUGS (1)
  1. ADVIL [Suspect]
     Dosage: TOPICAL
     Route: 061
     Dates: end: 20060424

REACTIONS (1)
  - RECTAL HAEMORRHAGE [None]
